FAERS Safety Report 8341119-2 (Version None)
Quarter: 2012Q2

REPORT INFORMATION
  Report Type: 
  Country: None (occurrence: None)
  Receive Date: 20120507
  Receipt Date: 20120424
  Transmission Date: 20120825
  Serious: Yes (Hospitalization)
  Sender: FDA-Public Use
  Company Number: FR-VIIV HEALTHCARE LIMITED-B0797720A

PATIENT
  Sex: Female

DRUGS (5)
  1. EMTRIVA [Concomitant]
     Indication: HIV INFECTION
     Dates: start: 20110117, end: 20111202
  2. INTELENCE [Concomitant]
     Indication: HIV INFECTION
     Dates: start: 20110117, end: 20111202
  3. ZIAGEN [Suspect]
     Indication: HIV INFECTION
     Dosage: 600MG PER DAY
     Route: 048
     Dates: start: 20111202, end: 20120130
  4. ISENTRESS [Concomitant]
     Indication: HIV INFECTION
     Route: 048
     Dates: start: 20100302
  5. FUZEON [Concomitant]
     Indication: HIV INFECTION
     Route: 058
     Dates: start: 20111202

REACTIONS (1)
  - HEPATOCELLULAR INJURY [None]
